FAERS Safety Report 9990484 (Version 2)
Quarter: 2014Q2

REPORT INFORMATION
  Report Type: Spontaneous
  Country: US (occurrence: US)
  Receive Date: 20140310
  Receipt Date: 20140407
  Transmission Date: 20141212
  Serious: No
  Sender: FDA-Public Use
  Company Number: US-009507513-1403USA001766

PATIENT
  Age: 83 Year
  Sex: Female
  Weight: 78.5 kg

DRUGS (6)
  1. OXYTROL FOR WOMEN [Suspect]
     Indication: URINARY INCONTINENCE
     Dosage: UNK, UNKNOWN
     Route: 062
     Dates: start: 20140213, end: 20140220
  2. VOLTAREN EMULGEL [Concomitant]
     Indication: LYMPHOEDEMA
     Dosage: UNK, UNKNOWN
  3. VOLTAREN EMULGEL [Concomitant]
     Indication: ARTHRITIS
  4. VOLTAREN EMULGEL [Concomitant]
     Indication: KNEE DEFORMITY
  5. ARMOUR THYROID TABLETS [Concomitant]
     Indication: HYPOTHYROIDISM
  6. ARMOUR THYROID TABLETS [Concomitant]
     Indication: KNEE DEFORMITY

REACTIONS (1)
  - Epistaxis [Unknown]
